FAERS Safety Report 13676788 (Version 2)
Quarter: 2017Q2

REPORT INFORMATION
  Report Type: Spontaneous
  Country: CH (occurrence: CH)
  Receive Date: 20170622
  Receipt Date: 20170626
  Transmission Date: 20170830
  Serious: Yes (Hospitalization, Other)
  Sender: FDA-Public Use
  Company Number: CH-ACCORD-052799

PATIENT
  Age: 45 Year
  Sex: Female

DRUGS (5)
  1. MITOMYCIN. [Suspect]
     Active Substance: MITOMYCIN
     Indication: ANAL CANCER
     Dosage: FOUR INTRA-ARTERIAL INFUSIONS PER DAY FOR TWO DAYS
     Route: 013
  2. CISPLATIN. [Suspect]
     Active Substance: CISPLATIN
     Indication: ANAL CANCER
     Dosage: FOUR INTRA-ARTERIAL INFUSIONS PER DAY FOR TWO DAYS,
     Route: 013
  3. FLUOROURACIL. [Suspect]
     Active Substance: FLUOROURACIL
     Indication: ANAL CANCER
     Dosage: FOUR INTRA-ARTERIAL INFUSIONS PER DAY FOR TWO DAYS
     Route: 013
  4. METHOTREXATE. [Suspect]
     Active Substance: METHOTREXATE
     Indication: ANAL CANCER
     Dosage: FOUR INTRA-ARTERIAL INFUSIONS PER DAY FOR TWO DAYS
     Route: 013
  5. BLEOMYCIN [Suspect]
     Active Substance: BLEOMYCIN SULFATE
     Indication: ANAL CANCER
     Dosage: DOSE: SINGLE INTRAVENOUS DOSE OF BLEOMYCIN?(10 MG) ON THE FIRST DAY
     Route: 042

REACTIONS (4)
  - Vomiting [Unknown]
  - Cardiogenic shock [Recovered/Resolved]
  - Stress cardiomyopathy [Recovered/Resolved]
  - Nausea [Unknown]
